FAERS Safety Report 20156754 (Version 1)
Quarter: 2021Q4

REPORT INFORMATION
  Report Type: Spontaneous
  Country: US (occurrence: None)
  Receive Date: 20211207
  Receipt Date: 20211207
  Transmission Date: 20220304
  Serious: Yes (Hospitalization)
  Sender: FDA-Public Use
  Company Number: None

PATIENT
  Age: 20 Year
  Sex: Male
  Weight: 78.3 kg

DRUGS (1)
  1. PACLITAXEL [Suspect]
     Active Substance: PACLITAXEL
     Indication: Nasal sinus cancer
     Dosage: OTHER FREQUENCY : WEEKLY;?
     Route: 042
     Dates: start: 20211203, end: 20211203

REACTIONS (3)
  - Infusion related reaction [None]
  - Chest pain [None]
  - Flushing [None]

NARRATIVE: CASE EVENT DATE: 20211203
